FAERS Safety Report 8371416-6 (Version None)
Quarter: 2012Q2

REPORT INFORMATION
  Report Type: 
  Country: None (occurrence: None)
  Receive Date: 20120518
  Receipt Date: 20120510
  Transmission Date: 20120825
  Serious: No
  Sender: FDA-Public Use
  Company Number: US-ASTRAZENECA-2012SE30357

PATIENT
  Age: 64 Year
  Sex: Female
  Weight: 130 kg

DRUGS (1)
  1. SYMBICORT [Suspect]
     Indication: ASTHMA
     Dosage: TWO PUFFS TWO TIMES A DAY
     Route: 055
     Dates: start: 20111101

REACTIONS (6)
  - MALAISE [None]
  - PNEUMONIA [None]
  - DYSPNOEA [None]
  - PLEURISY [None]
  - LUNG DISORDER [None]
  - DRUG HYPERSENSITIVITY [None]
